FAERS Safety Report 8308981-0 (Version None)
Quarter: 2012Q2

REPORT INFORMATION
  Report Type: 
  Country: None (occurrence: None)
  Receive Date: 20120424
  Receipt Date: 20120417
  Transmission Date: 20120825
  Serious: Yes (Hospitalization)
  Sender: FDA-Public Use
  Company Number: US-GILEAD-2012-0052772

PATIENT
  Sex: Male

DRUGS (6)
  1. ALBUTEROL SULFATE [Concomitant]
  2. SPIRIVA [Concomitant]
  3. PULMICORT [Concomitant]
  4. LETAIRIS [Suspect]
     Indication: PULMONARY ARTERIAL HYPERTENSION
     Dosage: 10 MG, UNK
     Route: 048
     Dates: start: 20110916
  5. LETAIRIS [Suspect]
     Dosage: 7.5 UNK, UNK
     Route: 048
     Dates: start: 20120411
  6. BROVANA [Concomitant]

REACTIONS (3)
  - URINARY TRACT INFECTION [None]
  - HYPOTENSION [None]
  - BLOOD PRESSURE INCREASED [None]
